FAERS Safety Report 6095307-9 (Version None)
Quarter: 2009Q1

REPORT INFORMATION
  Report Type: 
  Country: None (occurrence: None)
  Receive Date: 20090227
  Receipt Date: 20080314
  Transmission Date: 20090719
  Serious: No
  Sender: FDA-Public Use
  Company Number: A0713540A

PATIENT
  Age: 50 Year
  Sex: Female
  Weight: 98.2 kg

DRUGS (1)
  1. LAMICTAL [Suspect]
     Indication: EPILEPSY
     Dosage: 250MG TWICE PER DAY
     Route: 048
     Dates: start: 20040101

REACTIONS (2)
  - PRODUCT QUALITY ISSUE [None]
  - RASH [None]
